FAERS Safety Report 17550288 (Version 1)
Quarter: 2020Q1

REPORT INFORMATION
  Report Type: Spontaneous
  Country: None (occurrence: US)
  Receive Date: 20200317
  Receipt Date: 20200317
  Transmission Date: 20200409
  Serious: No
  Sender: FDA-Public Use
  Company Number: US-ORION CORPORATION ORION PHARMA-ENT 2019-0074

PATIENT
  Age: 74 Year
  Sex: Male

DRUGS (13)
  1. ENTACAPONE. [Suspect]
     Active Substance: ENTACAPONE
     Indication: PARKINSON^S DISEASE
     Dosage: 5 TIMES A DAY
     Route: 065
  2. DROXIDOPA [Interacting]
     Active Substance: DROXIDOPA
     Route: 065
  3. DROXIDOPA [Interacting]
     Active Substance: DROXIDOPA
     Indication: PARKINSON^S DISEASE
     Route: 065
  4. FLUDROCORTISONE [Concomitant]
     Active Substance: FLUDROCORTISONE
     Route: 065
  5. MELATONIN [Concomitant]
     Active Substance: MELATONIN
     Dosage: AT BEDTIME
     Route: 065
  6. DROXIDOPA [Interacting]
     Active Substance: DROXIDOPA
     Route: 065
  7. DROXIDOPA [Interacting]
     Active Substance: DROXIDOPA
     Route: 065
  8. DROXIDOPA [Interacting]
     Active Substance: DROXIDOPA
     Route: 065
  9. MIDODRINE [Concomitant]
     Active Substance: MIDODRINE
     Route: 065
  10. RIVASTIGMINE. [Concomitant]
     Active Substance: RIVASTIGMINE
     Route: 065
  11. DROXIDOPA [Interacting]
     Active Substance: DROXIDOPA
     Route: 065
  12. LEVODOPA-CARBIDOPA [Interacting]
     Active Substance: CARBIDOPA\LEVODOPA
     Indication: PARKINSON^S DISEASE
     Dosage: 25 TO 250 MG SIX AND A HALF TABLETS DAILY
     Route: 065
  13. PYRIDOSTIGMINE [Concomitant]
     Active Substance: PYRIDOSTIGMINE
     Route: 065

REACTIONS (6)
  - Drug interaction [Unknown]
  - Perseveration [Unknown]
  - Orthostatic hypotension [Unknown]
  - Anxiety [Unknown]
  - Irritability [Not Recovered/Not Resolved]
  - Aggression [Not Recovered/Not Resolved]
